FAERS Safety Report 4508711-4 (Version None)
Quarter: 2004Q4

REPORT INFORMATION
  Report Type: 
  Country: None (occurrence: None)
  Receive Date: 20041122
  Receipt Date: 20041122
  Transmission Date: 20050328
  Serious: Yes (Life-Threatening)
  Sender: FDA-Public Use
  Company Number: None

PATIENT
  Age: 60 Year
  Sex: Male
  Weight: 85.2762 kg

DRUGS (30)
  1. SUCCINYLCHLOLINE CHLORIDE INJ [Suspect]
     Indication: INTUBATION
     Dosage: 100 MG IV X 1 DOSE
     Dates: start: 20040807
  2. LOVENOX [Concomitant]
  3. LOPRESSOR [Concomitant]
  4. CAPOTEN [Concomitant]
  5. ZOCOR [Concomitant]
  6. LASIX [Concomitant]
  7. IMIPRAM TAB [Concomitant]
  8. GLUCOVANCE [Concomitant]
  9. AMIODARONE [Concomitant]
  10. INSULIN [Concomitant]
  11. NITROGLYCERIN [Concomitant]
  12. LEVAQUIN [Concomitant]
  13. CHLORASEPTIC [Concomitant]
  14. DEXTROSE 5% [Concomitant]
  15. 0.45% NORMAL SALINE [Concomitant]
  16. ASPIRIN [Concomitant]
  17. ALBUTEROL BY NEBULIZER [Concomitant]
  18. LASIX [Concomitant]
  19. HYPERTONIC SODIUM CHLORIDE [Concomitant]
  20. LOPRESSOR [Concomitant]
  21. VERSED IV [Concomitant]
  22. MORPHINE SULFATE [Concomitant]
  23. ATROPINE [Concomitant]
  24. XANAX [Concomitant]
  25. AMBIEN [Concomitant]
  26. TYLENOL (CAPLET) [Concomitant]
  27. PHENERGAN [Concomitant]
  28. DULCOLAX [Concomitant]
  29. ALUMINUM HYDROXIDE AND MAGNESIUM TRISILICATE [Concomitant]
  30. ALBUTEROL [Concomitant]

REACTIONS (6)
  - ACUTE MYOCARDIAL INFARCTION [None]
  - BODY TEMPERATURE INCREASED [None]
  - CONDITION AGGRAVATED [None]
  - FEBRILE CONVULSION [None]
  - HYPONATRAEMIA [None]
  - PULMONARY OEDEMA [None]
